FAERS Safety Report 6956525-8 (Version None)
Quarter: 2010Q3

REPORT INFORMATION
  Report Type: 
  Country: None (occurrence: None)
  Receive Date: 20100830
  Receipt Date: 20100817
  Transmission Date: 20110219
  Serious: Yes (Hospitalization)
  Sender: FDA-Public Use
  Company Number: US-ELI_LILLY_AND_COMPANY-US201006002393

PATIENT
  Sex: Female

DRUGS (11)
  1. FORTEO [Suspect]
     Indication: OSTEOPOROSIS
     Dosage: 20 UG, DAILY (1/D)
     Dates: start: 20100527
  2. ADVAIR DISKUS 100/50 [Concomitant]
     Indication: ASTHMA
     Dosage: UNK, DAILY (1/D)
  3. PRILOSEC [Concomitant]
  4. B12-VITAMIN [Concomitant]
     Dosage: UNK, DAILY (1/D)
  5. MULTI-VIT [Concomitant]
     Dosage: UNK, DAILY (1/D)
  6. ASACOL [Concomitant]
  7. METOPROLOL TARTRATE [Concomitant]
     Dosage: 100 MG, 2/D
  8. LISINOPRIL HCT /01613901/ [Concomitant]
     Dosage: 20 MG, DAILY (1/D)
  9. PREMARIN [Concomitant]
     Dosage: 0.625 MG, DAILY (1/D)
  10. CALCIUM [Concomitant]
     Dosage: 600 MG, 3/D
  11. TYLENOL (CAPLET) [Concomitant]

REACTIONS (16)
  - BLOOD PRESSURE DECREASED [None]
  - BLOOD PRESSURE INCREASED [None]
  - BONE PAIN [None]
  - CHILLS [None]
  - DECREASED APPETITE [None]
  - DYSPHAGIA [None]
  - FATIGUE [None]
  - FEELING COLD [None]
  - HEART RATE ABNORMAL [None]
  - HERNIA HIATUS REPAIR [None]
  - HYPERHIDROSIS [None]
  - INSOMNIA [None]
  - LIMB DISCOMFORT [None]
  - MUSCLE SPASMS [None]
  - NAUSEA [None]
  - PERIPHERAL COLDNESS [None]
